FAERS Safety Report 9087562 (Version 2)
Quarter: 2013Q1

REPORT INFORMATION
  Report Type: Spontaneous
  Country: DE (occurrence: DE)
  Receive Date: 20130201
  Receipt Date: 20130311
  Transmission Date: 20140127
  Serious: Yes (Other)
  Sender: FDA-Public Use
  Company Number: GXKR2013DE000726

PATIENT
  Age: 67 Year
  Sex: Female
  Weight: 72 kg

DRUGS (1)
  1. SIMVASTATIN [Suspect]
     Indication: HYPERTRIGLYCERIDAEMIA
     Dosage: 10 MG, QD
     Route: 048
     Dates: start: 201210, end: 201301

REACTIONS (6)
  - Loss of consciousness [Unknown]
  - Balance disorder [Recovering/Resolving]
  - Vomiting [Recovering/Resolving]
  - Vertigo [Unknown]
  - Myalgia [Recovering/Resolving]
  - Musculoskeletal stiffness [Unknown]
